FAERS Safety Report 11523160 (Version 1)
Quarter: 2015Q3

REPORT INFORMATION
  Report Type: Spontaneous
  Country: US (occurrence: US)
  Receive Date: 20150918
  Receipt Date: 20150918
  Transmission Date: 20151125
  Serious: Yes (Hospitalization, Other)
  Sender: FDA-Public Use
  Company Number: US-ROCHE-719515

PATIENT
  Age: 59 Year
  Sex: Female
  Weight: 49 kg

DRUGS (1)
  1. PEGASYS [Suspect]
     Active Substance: PEGINTERFERON ALFA-2A
     Indication: HEPATITIS C
     Dosage: FORM: INJECTION
     Route: 058
     Dates: start: 20091002, end: 20100727

REACTIONS (3)
  - Staphylococcal infection [Recovered/Resolved]
  - Cellulitis [Unknown]
  - Abscess limb [Unknown]

NARRATIVE: CASE EVENT DATE: 20100427
